FAERS Safety Report 12267452 (Version 1)
Quarter: 2016Q2

REPORT INFORMATION
  Report Type: Spontaneous
  Country: US (occurrence: None)
  Receive Date: 20160413
  Receipt Date: 20160413
  Transmission Date: 20160815
  Serious: Yes (Hospitalization)
  Sender: FDA-Public Use
  Company Number: None

PATIENT
  Age: 78 Year
  Sex: Male
  Weight: 73.2 kg

DRUGS (2)
  1. APIXABAN [Suspect]
     Active Substance: APIXABAN
     Indication: RENAL ARTERY OCCLUSION
     Dosage: MG BID PO
     Route: 048
     Dates: start: 20150320, end: 20151007
  2. APIXABAN [Suspect]
     Active Substance: APIXABAN
     Indication: ATRIAL FIBRILLATION
     Dosage: MG BID PO
     Route: 048
     Dates: start: 20150320, end: 20151007

REACTIONS (3)
  - Gastric haemorrhage [None]
  - Haematochezia [None]
  - Gastritis erosive [None]

NARRATIVE: CASE EVENT DATE: 20151006
